FAERS Safety Report 5618575-3 (Version None)
Quarter: 2008Q1

REPORT INFORMATION
  Report Type: 
  Country: None (occurrence: None)
  Receive Date: 20080207
  Receipt Date: 20080205
  Transmission Date: 20080703
  Serious: Yes (Other)
  Sender: FDA-Public Use
  Company Number: BE-MERCK-0801BEL00008

PATIENT
  Age: 64 Year
  Sex: Female
  Weight: 104 kg

DRUGS (6)
  1. ZOCOR [Suspect]
     Indication: HYPERCHOLESTEROLAEMIA
     Route: 048
  2. MODURETIC 5-50 [Concomitant]
     Indication: HYPERTENSION
     Route: 048
     Dates: start: 20000101, end: 20050705
  3. TRITACE [Concomitant]
     Indication: HYPERTENSION
     Route: 048
     Dates: start: 20000101, end: 20050705
  4. ASAFLOW [Concomitant]
     Indication: PROPHYLAXIS
     Route: 048
     Dates: start: 20050704
  5. COZAAR [Concomitant]
     Indication: HYPERTENSION
     Route: 048
     Dates: start: 20050704
  6. AMLOR [Concomitant]
     Indication: HYPERTENSION
     Route: 048

REACTIONS (1)
  - DIABETES MELLITUS [None]
